FAERS Safety Report 20159135 (Version 1)
Quarter: 2021Q4

REPORT INFORMATION
  Report Type: Spontaneous
  Country: BR (occurrence: BR)
  Receive Date: 20211208
  Receipt Date: 20211208
  Transmission Date: 20220303
  Serious: No
  Sender: FDA-Public Use
  Company Number: BR-LUPIN PHARMACEUTICALS INC.-2021-23872

PATIENT
  Age: 53 Year
  Sex: Female

DRUGS (2)
  1. HYDROXYCHLOROQUINE [Suspect]
     Active Substance: HYDROXYCHLOROQUINE
     Indication: Lichen planopilaris
     Dosage: 400 MILLIGRAM, QD
     Route: 065
  2. MINOXIDIL [Suspect]
     Active Substance: MINOXIDIL
     Indication: Lichen planopilaris
     Dosage: UNK
     Route: 061

REACTIONS (2)
  - Off label use [Unknown]
  - Drug ineffective for unapproved indication [Unknown]
